FAERS Safety Report 7377247-8 (Version None)
Quarter: 2011Q1

REPORT INFORMATION
  Report Type: 
  Country: None (occurrence: None)
  Receive Date: 20110315
  Receipt Date: 20110301
  Transmission Date: 20110831
  Serious: Yes (Other)
  Sender: FDA-Public Use
  Company Number: MC201100082

PATIENT
  Age: 54 Year
  Sex: Male

DRUGS (5)
  1. CLOPIDOGREL [Concomitant]
  2. EPTIFIBATIDE [Concomitant]
  3. ANGIOMAX [Suspect]
     Indication: ANTICOAGULANT THERAPY
     Dosage: 0.75 MG/KG, BOLUS, INTRAVENOUS ; 1.75 UG/KG, HR, INTRAVENOUS
     Route: 042
  4. ASPIRIN [Concomitant]
  5. NICARDIPINE (NICARDIPINE HYDROCHLORIDE) [Concomitant]

REACTIONS (7)
  - THROMBOSIS IN DEVICE [None]
  - CHEST PAIN [None]
  - CORONARY ARTERY DISSECTION [None]
  - CORONARY ARTERY THROMBOSIS [None]
  - ELECTROCARDIOGRAM ST SEGMENT ELEVATION [None]
  - BLOOD CREATINE PHOSPHOKINASE MB INCREASED [None]
  - CORONARY ARTERY OCCLUSION [None]
